FAERS Safety Report 17462044 (Version 1)
Quarter: 2020Q1

REPORT INFORMATION
  Report Type: Spontaneous
  Country: US (occurrence: US)
  Receive Date: 20200226
  Receipt Date: 20200226
  Transmission Date: 20200409
  Serious: No
  Sender: FDA-Public Use
  Company Number: US-NOVOPROD-665426

PATIENT
  Age: 26 Year
  Sex: Male

DRUGS (2)
  1. SAXENDA [Suspect]
     Active Substance: LIRAGLUTIDE
     Indication: WEIGHT DECREASED
     Dosage: 0.6 MG
     Route: 058
     Dates: start: 20190429, end: 2019
  2. SAXENDA [Suspect]
     Active Substance: LIRAGLUTIDE
     Dosage: 1.2 MG
     Route: 058
     Dates: start: 2019, end: 20190511

REACTIONS (2)
  - Micturition urgency [Recovered/Resolved]
  - Urinary retention [Recovered/Resolved]

NARRATIVE: CASE EVENT DATE: 20190506
